FAERS Safety Report 9439261 (Version 5)
Quarter: 2013Q4

REPORT INFORMATION
  Report Type: Spontaneous
  Country: JP (occurrence: JP)
  Receive Date: 20130804
  Receipt Date: 20131030
  Transmission Date: 20140711
  Serious: Yes (Death, Hospitalization)
  Sender: FDA-Public Use
  Company Number: JP-ROCHE-1254744

PATIENT
  Age: 88 Year
  Sex: Male

DRUGS (14)
  1. DENOSINE [Suspect]
     Indication: CYTOMEGALOVIRUS INFECTION
     Route: 041
     Dates: start: 20130605, end: 20130618
  2. DENOSINE [Suspect]
     Indication: URINARY TRACT INFECTION
     Route: 041
     Dates: start: 20130705, end: 20130708
  3. DENOSINE [Suspect]
     Indication: FUNGAL INFECTION
     Route: 041
     Dates: end: 20130717
  4. DAIPHEN [Suspect]
     Indication: PRODUCT USED FOR UNKNOWN INDICATION
     Route: 048
  5. PREDNISOLONE [Suspect]
     Indication: PRODUCT USED FOR UNKNOWN INDICATION
     Route: 048
  6. CRAVIT [Concomitant]
     Route: 065
     Dates: start: 20130515, end: 20130523
  7. BAYASPIRIN [Concomitant]
     Route: 048
  8. PLAVIX [Concomitant]
     Route: 048
  9. MAGMITT [Concomitant]
     Route: 048
  10. SODIUM CHLORIDE [Concomitant]
     Route: 048
  11. JANUVIA [Concomitant]
     Route: 048
  12. GASMOTIN [Concomitant]
     Route: 048
  13. SHINLUCK [Concomitant]
     Dosage: 10-15 DROPS ONCE DAILY
     Route: 048
  14. ITRIZOLE [Concomitant]
     Route: 048

REACTIONS (3)
  - Interstitial lung disease [Fatal]
  - Multi-organ failure [Fatal]
  - White blood cell count decreased [Not Recovered/Not Resolved]
